FAERS Safety Report 8763272 (Version 1)
Quarter: 2012Q4

REPORT INFORMATION
  Report Type: Spontaneous
  Country: US (occurrence: None)
  Receive Date: 20120831
  Receipt Date: 20120831
  Transmission Date: 20130627
  Serious: Yes (Other)
  Sender: FDA-Public Use
  Company Number: None

PATIENT
  Age: 26 Year
  Sex: Female
  Weight: 48.08 kg

DRUGS (2)
  1. METHIMAZOLE [Suspect]
     Indication: THYROTOXICOSIS
     Dosage: 10 to 20 mg daily
     Route: 048
     Dates: start: 20120301, end: 20120401
  2. METHIMAZOLE [Suspect]
     Indication: THYROTOXICOSIS
     Dosage: 10 to 20 mg daily
     Route: 048
     Dates: start: 20120801, end: 20120828

REACTIONS (1)
  - Drug eruption [None]
